FAERS Safety Report 4442798-2 (Version None)
Quarter: 2004Q3

REPORT INFORMATION
  Report Type: 
  Country: None (occurrence: None)
  Receive Date: 20040903
  Receipt Date: 20040610
  Transmission Date: 20050211
  Serious: Yes (Other)
  Sender: FDA-Public Use
  Company Number: 2004UW12037

PATIENT
  Age: 59 Year
  Sex: Female
  Weight: 86.637 kg

DRUGS (16)
  1. CRESTOR [Suspect]
     Indication: BLOOD CHOLESTEROL INCREASED
     Dates: start: 20040101
  2. ACTOS [Concomitant]
  3. PAXIL [Concomitant]
  4. HUMULIN [Concomitant]
  5. DIPHENOXYLATE [Concomitant]
  6. PREMARIN [Concomitant]
  7. XANAX [Concomitant]
  8. BEXTRA [Concomitant]
  9. ATENOLOL [Concomitant]
  10. CLARINEX [Concomitant]
  11. TRICOR [Concomitant]
  12. SKELAXIN [Concomitant]
  13. HYDROCHLOROTHIAZIDE [Concomitant]
  14. LOTREL [Concomitant]
  15. PREVACID [Concomitant]
  16. GLUCOVANCE [Concomitant]

REACTIONS (3)
  - HYPERHIDROSIS [None]
  - MYALGIA [None]
  - STOMACH DISCOMFORT [None]
